FAERS Safety Report 6495438-5 (Version None)
Quarter: 2009Q4

REPORT INFORMATION
  Report Type: 
  Country: None (occurrence: None)
  Receive Date: 20091214
  Receipt Date: 20090623
  Transmission Date: 20100525
  Serious: No
  Sender: FDA-Public Use
  Company Number: US-BRISTOL-MYERS SQUIBB COMPANY-14676902

PATIENT
  Age: 68 Year
  Sex: Female

DRUGS (1)
  1. ABILIFY [Suspect]
     Dosage: DOSE REDUCED TO 2.5MG
     Dates: start: 20080701, end: 20090501

REACTIONS (2)
  - PARKINSONISM [None]
  - TARDIVE DYSKINESIA [None]
